FAERS Safety Report 5680953-4 (Version None)
Quarter: 2008Q1

REPORT INFORMATION
  Report Type: 
  Country: None (occurrence: None)
  Receive Date: 20080326
  Receipt Date: 20080314
  Transmission Date: 20080703
  Serious: Yes (Other)
  Sender: FDA-Public Use
  Company Number: US-PFIZER INC-2008024757

PATIENT
  Age: 87 Year
  Sex: Female

DRUGS (10)
  1. LYRICA [Suspect]
  2. XOPENEX [Suspect]
     Indication: ASTHMA
     Route: 055
     Dates: start: 20070101
  3. DIGOXIN [Concomitant]
  4. HYZAAR [Concomitant]
  5. TRICOR [Concomitant]
     Dates: end: 20080201
  6. COUMADIN [Concomitant]
  7. MUCINEX [Concomitant]
  8. HALL'S MENTHO-LYPTUS [Concomitant]
  9. ACETYLCYSTEINE [Concomitant]
  10. SUCRETS [Concomitant]

REACTIONS (2)
  - CONVULSION [None]
  - PRURITUS [None]
